FAERS Safety Report 7301647 (Version 7)
Quarter: 2015Q1

REPORT INFORMATION
  Report Type: Spontaneous
  Country: GB (occurrence: GB)
  Receive Date: 20100302
  Receipt Date: 20150109
  Transmission Date: 20150721
  Serious: Yes (Hospitalization, Other)
  Sender: FDA-Public Use
  Company Number: PHHY2010GB09656

PATIENT
  Sex: Male

DRUGS (5)
  1. CLOZARIL [Suspect]
     Active Substance: CLOZAPINE
     Dosage: 450 MG, UNK
     Route: 048
  2. CLOZARIL [Suspect]
     Active Substance: CLOZAPINE
     Indication: SCHIZOPHRENIA
     Dosage: 450 MG
     Route: 048
     Dates: start: 19940104
  3. CLOZARIL [Suspect]
     Active Substance: CLOZAPINE
     Dosage: 500 MG, UNK
     Route: 048
  4. CLOZARIL [Suspect]
     Active Substance: CLOZAPINE
     Dosage: OUTS IT DOWN TO STABILITY IN HIS DOSE OF 550 MG
     Route: 048
  5. CLOZARIL [Suspect]
     Active Substance: CLOZAPINE
     Dosage: 450 MG, QD
     Route: 048
     Dates: start: 20010701

REACTIONS (11)
  - Depressed level of consciousness [Unknown]
  - Agitation [Unknown]
  - Confusional state [Unknown]
  - Brain injury [Unknown]
  - Mental impairment [Unknown]
  - Disinhibition [Unknown]
  - Arthritis [Unknown]
  - Movement disorder [Unknown]
  - Speech disorder [Recovering/Resolving]
  - Inappropriate affect [Unknown]
  - Hyperhidrosis [Unknown]
